FAERS Safety Report 6146255-7 (Version None)
Quarter: 2009Q2

REPORT INFORMATION
  Report Type: 
  Country: None (occurrence: None)
  Receive Date: 20090403
  Receipt Date: 20090325
  Transmission Date: 20091009
  Serious: Yes (Hospitalization)
  Sender: FDA-Public Use
  Company Number: PAR_02902_2009

PATIENT
  Sex: Male
  Weight: 178 kg

DRUGS (7)
  1. CABERGOLINE [Suspect]
     Indication: PITUITARY TUMOUR
     Dosage: SEE IMAGE
     Route: 048
     Dates: start: 20080601, end: 20090301
  2. CABERGOLINE [Suspect]
     Indication: PITUITARY TUMOUR
     Dosage: SEE IMAGE
     Route: 048
     Dates: start: 20090301, end: 20090301
  3. CABERGOLINE [Suspect]
     Indication: PITUITARY TUMOUR
     Dosage: SEE IMAGE
     Route: 048
     Dates: start: 20090301
  4. SYNTHROID [Concomitant]
  5. FAMOTIDINE [Concomitant]
  6. ASPIRIN [Concomitant]
  7. VITAMINS NOS [Concomitant]

REACTIONS (4)
  - CONSTIPATION [None]
  - FACE INJURY [None]
  - HEART RATE IRREGULAR [None]
  - LOSS OF CONSCIOUSNESS [None]
